FAERS Safety Report 5445239-1 (Version None)
Quarter: 2007Q3

REPORT INFORMATION
  Report Type: 
  Country: None (occurrence: None)
  Receive Date: 20070906
  Receipt Date: 20070827
  Transmission Date: 20080115
  Serious: Yes (Hospitalization)
  Sender: FDA-Public Use
  Company Number: FR-PFIZER INC-2007071166

PATIENT
  Sex: Male

DRUGS (6)
  1. LINEZOLID [Suspect]
     Route: 042
     Dates: start: 20051209, end: 20051214
  2. CEFTRIAXONE [Suspect]
     Route: 042
     Dates: start: 20051207, end: 20051209
  3. FOSFOMYCIN [Suspect]
     Route: 042
     Dates: start: 20051207, end: 20051209
  4. PRISTINAMYCIN [Suspect]
     Route: 048
     Dates: start: 20051207, end: 20051209
  5. FORTUM [Suspect]
     Route: 042
     Dates: start: 20051209, end: 20051214
  6. VANCOMYCIN [Suspect]
     Route: 042
     Dates: start: 20051209, end: 20051214

REACTIONS (1)
  - DRUG RASH WITH EOSINOPHILIA AND SYSTEMIC SYMPTOMS [None]
